FAERS Safety Report 21528445 (Version 5)
Quarter: 2022Q4

REPORT INFORMATION
  Report Type: Report from Study
  Country: US (occurrence: US)
  Receive Date: 20221031
  Receipt Date: 20221212
  Transmission Date: 20230113
  Serious: No
  Sender: FDA-Public Use
  Company Number: US-NOVARTISTESTPH-NVSC2022US242705

PATIENT
  Sex: Female

DRUGS (3)
  1. COSENTYX [Suspect]
     Active Substance: SECUKINUMAB
     Indication: Ankylosing spondylitis
     Dosage: 300 MG, OTHER, ONCE A WEEK FOR 5 WEEKS
     Route: 058
  2. COSENTYX [Suspect]
     Active Substance: SECUKINUMAB
     Dosage: UNK, (3RD LOADING DOSE)
     Route: 065
  3. METHOTREXATE [Concomitant]
     Active Substance: METHOTREXATE
     Indication: Product used for unknown indication
     Dosage: UNK
     Route: 065

REACTIONS (13)
  - Headache [Recovered/Resolved]
  - Nausea [Recovered/Resolved]
  - Arthralgia [Unknown]
  - Injection site pain [Unknown]
  - Hypoaesthesia [Unknown]
  - Dyspnoea [Unknown]
  - Musculoskeletal discomfort [Unknown]
  - Pain [Unknown]
  - Headache [Unknown]
  - Nausea [Unknown]
  - Taste disorder [Unknown]
  - Back pain [Unknown]
  - Musculoskeletal stiffness [Unknown]
